FAERS Safety Report 15526419 (Version 1)
Quarter: 2018Q4

REPORT INFORMATION
  Report Type: Spontaneous
  Country: FR (occurrence: FR)
  Receive Date: 20181018
  Receipt Date: 20181018
  Transmission Date: 20190205
  Serious: Yes (Other)
  Sender: FDA-Public Use
  Company Number: PHHY2018FR127550

PATIENT
  Age: 55 Year
  Sex: Male

DRUGS (1)
  1. DEXAMETHASONE. [Suspect]
     Active Substance: DEXAMETHASONE
     Indication: RETINAL TELANGIECTASIA
     Dosage: UNK (SLOW-RELEASE, IN THE RIGHT EYE)
     Route: 047

REACTIONS (4)
  - Intraocular pressure increased [Recovered/Resolved]
  - Off label use [Unknown]
  - Ocular hypertension [Recovering/Resolving]
  - Cataract [Recovered/Resolved]
